FAERS Safety Report 9705878 (Version 2)
Quarter: 2013Q4

REPORT INFORMATION
  Report Type: Report from Study
  Country: JP (occurrence: JP)
  Receive Date: 20131122
  Receipt Date: 20131122
  Transmission Date: 20140711
  Serious: Yes (Hospitalization)
  Sender: FDA-Public Use
  Company Number: JP-TAKEDA-2013TJP002162

PATIENT
  Age: 68 Year
  Sex: Female
  Weight: 47 kg

DRUGS (17)
  1. PIOGLITAZONE, GLIMEPIRIDE [Suspect]
     Dosage: 1 UNK, UNK
     Dates: start: 20120924, end: 20121007
  2. PIOGLITAZONE, GLIMEPIRIDE [Suspect]
     Dosage: 1 UNK, UNK
     Dates: start: 20121102, end: 20121116
  3. NORVASC [Suspect]
     Indication: HYPERTENSION
     Route: 048
     Dates: start: 20120511, end: 20120524
  4. NORVASC [Suspect]
     Route: 048
     Dates: start: 20120529, end: 20120708
  5. MICAMLO AP [Suspect]
     Indication: HYPERTENSION
     Route: 048
     Dates: start: 20120709, end: 20121116
  6. NESP [Suspect]
     Indication: NEPHROGENIC ANAEMIA
     Dosage: 60 ?G, QD
     Route: 058
     Dates: start: 20120924, end: 20121102
  7. AMLODIPINE /00972402/ [Suspect]
     Indication: HYPERTENSION
     Dosage: 5 MG, QD
     Route: 048
     Dates: start: 20120709, end: 20131116
  8. NESINA [Concomitant]
     Indication: TYPE 2 DIABETES MELLITUS
     Dosage: 25 MG, QD
     Route: 048
     Dates: start: 20120227, end: 20121116
  9. UNISIA [Concomitant]
     Indication: HYPERTENSION
     Dosage: 1 DF, QD
     Route: 048
     Dates: start: 20120425, end: 20120703
  10. AMARYL [Concomitant]
     Indication: TYPE 2 DIABETES MELLITUS
     Dosage: 1 MG, QD
     Route: 048
     Dates: start: 20120808, end: 20121116
  11. MAGMITT [Concomitant]
     Indication: CONSTIPATION
     Dosage: 500 MG, TID
     Route: 048
     Dates: start: 20120831, end: 20121116
  12. PIOGLITAZONE, GLIMEPIRIDE [Suspect]
     Indication: TYPE 2 DIABETES MELLITUS
     Dosage: 1 DF, QD
     Route: 048
     Dates: start: 20120511, end: 20120524
  13. PIOGLITAZONE, GLIMEPIRIDE [Suspect]
     Dosage: 1 UNK, UNK
     Route: 048
     Dates: start: 20120529, end: 20120611
  14. PIOGLITAZONE, GLIMEPIRIDE [Suspect]
     Dosage: 1 DF, QD
     Route: 048
     Dates: start: 20120620, end: 20120703
  15. PIOGLITAZONE, GLIMEPIRIDE [Suspect]
     Dosage: 1 UNK, UNK
     Route: 048
     Dates: start: 20120709, end: 20120722
  16. PIOGLITAZONE, GLIMEPIRIDE [Suspect]
     Dosage: 1 UNK, UNK
     Route: 048
     Dates: start: 20120808, end: 20120821
  17. PIOGLITAZONE, GLIMEPIRIDE [Suspect]
     Dosage: 1 UNK, UNK
     Route: 048
     Dates: start: 20120831, end: 20120913

REACTIONS (1)
  - Oedema [Unknown]
